FAERS Safety Report 5513790-1 (Version None)
Quarter: 2007Q4

REPORT INFORMATION
  Report Type: 
  Country: None (occurrence: None)
  Receive Date: 20071113
  Receipt Date: 20071106
  Transmission Date: 20080405
  Serious: Yes (Other)
  Sender: FDA-Public Use
  Company Number: PHBS2007BR18603

PATIENT
  Age: 84 Year
  Sex: Female
  Weight: 45 kg

DRUGS (6)
  1. EXELON [Suspect]
     Indication: DEMENTIA ALZHEIMER'S TYPE
     Dosage: 3 MG, BID
     Route: 048
     Dates: start: 20070601
  2. RISPERIDONE [Concomitant]
     Dosage: UNK, QD
     Route: 048
  3. ESTROGERON [Concomitant]
     Dosage: UNK, QD
  4. LEXOTAN [Concomitant]
     Dosage: 0.5 DF, QD
     Route: 048
  5. CALCIUM [Concomitant]
     Indication: OSTEOPOROSIS
     Dosage: UNK, QD
     Route: 048
  6. NORTRIPTYLINE HCL [Concomitant]
     Indication: ANXIETY
     Dosage: UNK, BID
     Route: 048

REACTIONS (4)
  - CONDITION AGGRAVATED [None]
  - DEMENTIA ALZHEIMER'S TYPE [None]
  - DYSPHAGIA [None]
  - SURGERY [None]
